FAERS Safety Report 16341469 (Version 1)
Quarter: 2019Q2

REPORT INFORMATION
  Report Type: Spontaneous
  Country: US (occurrence: US)
  Receive Date: 20190416
  Receipt Date: 20190416
  Transmission Date: 20190711
  Serious: No
  Sender: FDA-Public Use
  Company Number: None

PATIENT
  Age: 71 Year
  Sex: Male
  Weight: 99.7 kg

DRUGS (1)
  1. VANCOMYCIN [Suspect]
     Active Substance: VANCOMYCIN
     Indication: OSTEOMYELITIS
     Dosage: ?          OTHER DOSE:1.5GM;?
     Route: 042
     Dates: start: 20190109, end: 20190112

REACTIONS (3)
  - Platelet transfusion [None]
  - Immune thrombocytopenic purpura [None]
  - Platelet count decreased [None]

NARRATIVE: CASE EVENT DATE: 20190110
